FAERS Safety Report 6633241-3 (Version None)
Quarter: 2010Q1

REPORT INFORMATION
  Report Type: 
  Country: None (occurrence: None)
  Receive Date: 20100312
  Receipt Date: 20100224
  Transmission Date: 20100710
  Serious: Yes (Death, Hospitalization, Other)
  Sender: FDA-Public Use
  Company Number: PHHY2010US10901

PATIENT
  Sex: Female
  Weight: 64 kg

DRUGS (3)
  1. ERL 080A ERL+TAB [Suspect]
     Indication: RENAL TRANSPLANT
     Dosage: 1440 MG/DAY
     Route: 048
     Dates: start: 20091228
  2. TACROLIMUS [Concomitant]
     Indication: IMMUNOSUPPRESSION
     Dosage: 0.5 MG, BID
     Dates: start: 20091230
  3. PREDNISONE [Concomitant]
     Indication: IMMUNOSUPPRESSION
     Dosage: 10 MG, QD
     Dates: start: 20091231

REACTIONS (10)
  - ANKLE FRACTURE [None]
  - BLOOD CREATININE INCREASED [None]
  - CARDIAC DISORDER [None]
  - CEREBRAL ATROPHY [None]
  - DEATH [None]
  - GASTROINTESTINAL HAEMORRHAGE [None]
  - GENERALISED OEDEMA [None]
  - INFECTION [None]
  - MENTAL STATUS CHANGES [None]
  - RENAL IMPAIRMENT [None]
